FAERS Safety Report 4475461-2 (Version None)
Quarter: 2004Q4

REPORT INFORMATION
  Report Type: 
  Country: None (occurrence: None)
  Receive Date: 20041014
  Receipt Date: 20041014
  Transmission Date: 20050328
  Serious: Yes (Life-Threatening)
  Sender: FDA-Public Use
  Company Number: None

PATIENT
  Age: 52 Year
  Sex: Male
  Weight: 81.6475 kg

DRUGS (1)
  1. LIPITOR [Suspect]
     Indication: BLOOD CHOLESTEROL
     Dosage: 40 MG
     Dates: start: 20030101, end: 20040201

REACTIONS (2)
  - MUSCLE CRAMP [None]
  - RENAL FUNCTION TEST ABNORMAL [None]
